FAERS Safety Report 4640833-X (Version None)
Quarter: 2005Q2

REPORT INFORMATION
  Report Type: 
  Country: None (occurrence: None)
  Receive Date: 20050328
  Receipt Date: 20050126
  Transmission Date: 20051028
  Serious: No
  Sender: FDA-Public Use
  Company Number: SP00392

PATIENT
  Sex: Male

DRUGS (1)
  1. XIFAXAN [Suspect]
     Dosage: ORAL
     Route: 048
     Dates: start: 20040801, end: 20040801

REACTIONS (2)
  - ABNORMAL FAECES [None]
  - FAECES DISCOLOURED [None]
